FAERS Safety Report 10190563 (Version 1)
Quarter: 2014Q2

REPORT INFORMATION
  Report Type: Spontaneous
  Country: DE (occurrence: DE)
  Receive Date: 20140523
  Receipt Date: 20140523
  Transmission Date: 20141212
  Serious: Yes (Congenital Anomaly)
  Sender: FDA-Public Use
  Company Number: GXKR2014DE001950

PATIENT
  Sex: 0

DRUGS (3)
  1. CITALOPRAM [Suspect]
     Indication: DEPRESSION
     Dosage: 20 [MG/D ]
     Route: 064
     Dates: start: 20121212, end: 20130421
  2. MIRTAZAPINE [Suspect]
     Indication: DEPRESSION
     Dosage: 1 [MG/D ]
     Route: 064
  3. FOLSAEURE [Concomitant]
     Indication: PROPHYLAXIS OF NEURAL TUBE DEFECT
     Dosage: UNK UKN, UNK
     Route: 064
     Dates: end: 20130320

REACTIONS (2)
  - Limb reduction defect [Not Recovered/Not Resolved]
  - Asplenia [Not Recovered/Not Resolved]
